FAERS Safety Report 7059719-9 (Version None)
Quarter: 2010Q4

REPORT INFORMATION
  Report Type: 
  Country: None (occurrence: None)
  Receive Date: 20101025
  Receipt Date: 20101021
  Transmission Date: 20110411
  Serious: Yes (Life-Threatening, Hospitalization)
  Sender: FDA-Public Use
  Company Number: SE-ASTRAZENECA-2010SE47624

PATIENT
  Age: 20 Year
  Sex: Female
  Weight: 82 kg

DRUGS (4)
  1. SEROQUEL DEPOT [Suspect]
     Indication: BORDERLINE PERSONALITY DISORDER
     Dosage: 100 T. 100MG=10 GRAM TOTAL
     Route: 048
     Dates: start: 20100906, end: 20100906
  2. SEROQUEL DEPOT [Suspect]
     Indication: PERSONALITY DISORDER
     Dosage: 100 T. 100MG=10 GRAM TOTAL
     Route: 048
     Dates: start: 20100906, end: 20100906
  3. ZOPICLONE [Concomitant]
     Dosage: 30 T. 7.5MG=225 MG
  4. PANADOL [Concomitant]
     Dosage: 20 T. 500MG=10 G

REACTIONS (4)
  - ACUTE RESPIRATORY DISTRESS SYNDROME [None]
  - INTENTIONAL OVERDOSE [None]
  - LOSS OF CONSCIOUSNESS [None]
  - RESPIRATORY DEPRESSION [None]
